FAERS Safety Report 26072660 (Version 2)
Quarter: 2025Q4

REPORT INFORMATION
  Report Type: Spontaneous
  Country: JP (occurrence: JP)
  Receive Date: 20251120
  Receipt Date: 20251203
  Transmission Date: 20260117
  Serious: Yes (Hospitalization)
  Sender: ACCORD
  Company Number: JP-Accord-513477

PATIENT
  Age: 22 Year
  Sex: Female
  Weight: 58.4 kg

DRUGS (1)
  1. CLOZAPINE [Interacting]
     Active Substance: CLOZAPINE
     Indication: Schizophrenia
     Route: 048

REACTIONS (4)
  - Hypokalaemia [Recovered/Resolved]
  - Myopathy [Recovered/Resolved]
  - Renal tubular acidosis [Recovered/Resolved]
  - Drug-genetic interaction [Recovered/Resolved]
